FAERS Safety Report 11610795 (Version 1)
Quarter: 2015Q4

REPORT INFORMATION
  Report Type: Spontaneous
  Country: US (occurrence: None)
  Receive Date: 20151007
  Receipt Date: 20151007
  Transmission Date: 20160304
  Serious: Yes (Life-Threatening, Other)
  Sender: FDA-Public Use
  Company Number: None

PATIENT
  Age: 57 Year
  Sex: Female
  Weight: 106.6 kg

DRUGS (2)
  1. OMEGA 3 W/ FISH OIL [Concomitant]
  2. COMBIVENT RESPIMAT [Suspect]
     Active Substance: ALBUTEROL SULFATE\IPRATROPIUM BROMIDE
     Indication: ASTHMA
     Dosage: 1 PUFF
     Route: 048
     Dates: start: 20151006, end: 20151006

REACTIONS (1)
  - Blood pressure diastolic increased [None]

NARRATIVE: CASE EVENT DATE: 20151006
